FAERS Safety Report 18384701 (Version 3)
Quarter: 2021Q1

REPORT INFORMATION
  Report Type: Report from Study
  Country: GT (occurrence: GT)
  Receive Date: 20201015
  Receipt Date: 20210113
  Transmission Date: 20210419
  Serious: Yes (Other)
  Sender: FDA-Public Use
  Company Number: NVSC2020GT275345

PATIENT
  Age: 51 Year
  Sex: Male

DRUGS (2)
  1. EXFORGE HCT [Suspect]
     Active Substance: AMLODIPINE BESYLATE\HYDROCHLOROTHIAZIDE\VALSARTAN
     Indication: PRODUCT USED FOR UNKNOWN INDICATION
     Dosage: 10/320/25 MG (STARTED 15 YEARS AGO, STOPPED 4 MONTHS AGO)
     Route: 065
  2. EXFORGE HCT [Suspect]
     Active Substance: AMLODIPINE BESYLATE\HYDROCHLOROTHIAZIDE\VALSARTAN
     Dosage: 5/160/12.5 MG (STARTED 5 MONTHS AGO)
     Route: 065

REACTIONS (6)
  - Blood pressure fluctuation [Unknown]
  - Blood pressure decreased [Recovered/Resolved]
  - Blood pressure increased [Unknown]
  - Dizziness [Unknown]
  - Blood pressure decreased [Unknown]
  - Extra dose administered [Unknown]
